FAERS Safety Report 11770088 (Version 4)
Quarter: 2017Q3

REPORT INFORMATION
  Report Type: Report from Study
  Country: None (occurrence: CA)
  Receive Date: 20151123
  Receipt Date: 20170706
  Transmission Date: 20171127
  Serious: Yes (Disabling, Other)
  Sender: FDA-Public Use
  Company Number: CA-ABBVIE-13P-028-1103149-00

PATIENT
  Age: 53 Year
  Sex: Female

DRUGS (5)
  1. HUMIRA [Suspect]
     Active Substance: ADALIMUMAB
     Indication: SERONEGATIVE ARTHRITIS
     Route: 058
     Dates: start: 20120801, end: 20150311
  2. HUMIRA [Suspect]
     Active Substance: ADALIMUMAB
     Route: 058
     Dates: start: 20160913
  3. METHOTREXATE. [Concomitant]
     Active Substance: METHOTREXATE
     Indication: SERONEGATIVE ARTHRITIS
  4. HUMIRA [Suspect]
     Active Substance: ADALIMUMAB
     Route: 058
     Dates: start: 20151229, end: 20160114
  5. CORTISONE [Concomitant]
     Active Substance: CORTISONE\HYDROCORTISONE
     Indication: OSTEOARTHRITIS
     Route: 030

REACTIONS (11)
  - Exostosis [Not Recovered/Not Resolved]
  - Carpal tunnel syndrome [Not Recovered/Not Resolved]
  - Bone fragmentation [Not Recovered/Not Resolved]
  - Complication associated with device [Unknown]
  - Patient-device incompatibility [Unknown]
  - Arthralgia [Not Recovered/Not Resolved]
  - Oedema peripheral [Not Recovered/Not Resolved]
  - Gait disturbance [Unknown]
  - Pain in extremity [Unknown]
  - Drug ineffective [Unknown]
  - Nerve compression [Unknown]

NARRATIVE: CASE EVENT DATE: 2014
